FAERS Safety Report 26176396 (Version 1)
Quarter: 2025Q4

REPORT INFORMATION
  Report Type: Spontaneous
  Country: US (occurrence: US)
  Receive Date: 20251218
  Receipt Date: 20251218
  Transmission Date: 20260117
  Serious: Yes (Hospitalization)
  Sender: ELI LILLY AND COMPANY
  Company Number: US-ELI_LILLY_AND_COMPANY-US202512015873

PATIENT
  Age: 59 Year
  Sex: Male

DRUGS (2)
  1. VERZENIO [Suspect]
     Active Substance: ABEMACICLIB
     Indication: Neoplasm malignant
     Dosage: 200 MG, UNKNOWN
     Route: 048
     Dates: start: 20250911
  2. VIMPAT [Concomitant]
     Active Substance: LACOSAMIDE
     Indication: Fatigue
     Dosage: UNK
     Dates: start: 20250911

REACTIONS (2)
  - Procedural nausea [Recovering/Resolving]
  - Diarrhoea [Unknown]

NARRATIVE: CASE EVENT DATE: 20250911
